FAERS Safety Report 5541876-4 (Version None)
Quarter: 2007Q4

REPORT INFORMATION
  Report Type: 
  Country: None (occurrence: None)
  Receive Date: 20071210
  Receipt Date: 20071129
  Transmission Date: 20080405
  Serious: Yes (Other)
  Sender: FDA-Public Use
  Company Number: US-ROCHE-534247

PATIENT

DRUGS (2)
  1. CELLCEPT [Suspect]
     Indication: ORGAN TRANSPLANT
     Route: 065
  2. CYCLOSPORINE [Concomitant]

REACTIONS (2)
  - GASTROINTESTINAL TUBE INSERTION [None]
  - INTUBATION [None]
